FAERS Safety Report 23147723 (Version 1)
Quarter: 2023Q4

REPORT INFORMATION
  Report Type: Spontaneous
  Country: US (occurrence: US)
  Receive Date: 20231106
  Receipt Date: 20231106
  Transmission Date: 20240109
  Serious: No
  Sender: FDA-Public Use
  Company Number: US-AMGEN-USASP2023195118

PATIENT

DRUGS (20)
  1. BEVACIZUMAB [Suspect]
     Active Substance: BEVACIZUMAB
     Indication: Macular oedema
     Dosage: UNK
  2. IPILIMUMAB [Concomitant]
     Active Substance: IPILIMUMAB
     Indication: Metastatic malignant melanoma
     Dosage: UNK
     Route: 065
  3. TREMELIMUMAB [Concomitant]
     Active Substance: TREMELIMUMAB
     Indication: Metastatic malignant melanoma
     Dosage: UNK
     Route: 065
  4. NIVOLUMAB [Concomitant]
     Active Substance: NIVOLUMAB
     Indication: Metastatic malignant melanoma
     Dosage: UNK
     Route: 065
  5. PEMBROLIZUMAB [Concomitant]
     Active Substance: PEMBROLIZUMAB
     Indication: Metastatic malignant melanoma
     Dosage: UNK
     Route: 065
  6. TRAMETINIB [Concomitant]
     Active Substance: TRAMETINIB
     Indication: Metastatic malignant melanoma
     Dosage: UNK
     Route: 065
  7. COBIMETINIB [Concomitant]
     Active Substance: COBIMETINIB
     Indication: Metastatic malignant melanoma
     Dosage: UNK
     Route: 065
  8. BINIMETINIB [Concomitant]
     Active Substance: BINIMETINIB
     Indication: Metastatic malignant melanoma
     Dosage: UNK
     Route: 065
  9. DABRAFENIB [Concomitant]
     Active Substance: DABRAFENIB
     Indication: Metastatic malignant melanoma
     Dosage: UNK
     Route: 065
  10. ENCORAFENIB [Concomitant]
     Active Substance: ENCORAFENIB
     Indication: Metastatic malignant melanoma
     Dosage: UNK
     Route: 065
  11. VEMURAFENIB [Concomitant]
     Active Substance: VEMURAFENIB
     Indication: Metastatic malignant melanoma
     Dosage: UNK
     Route: 065
  12. IPILIMUMAB;NIVOLUMAB [Concomitant]
     Indication: Metastatic malignant melanoma
     Dosage: UNK
     Route: 065
  13. Cobimetinib;Vemurafenib [Concomitant]
     Indication: Metastatic malignant melanoma
     Dosage: UNK
     Route: 065
  14. Binimetinib;Encorafenib [Concomitant]
     Indication: Metastatic malignant melanoma
     Dosage: UNK
     Route: 065
  15. DABRAFENIB\TRAMETINIB [Concomitant]
     Active Substance: DABRAFENIB\TRAMETINIB
     Indication: Metastatic malignant melanoma
     Dosage: UNK
     Route: 065
  16. Ipilimumab;Pembrolizumab [Concomitant]
     Indication: Metastatic malignant melanoma
     Dosage: UNK
     Route: 065
  17. PREDNISOLONE [Concomitant]
     Active Substance: PREDNISOLONE
     Dosage: UNK
     Route: 061
  18. DIFLUPREDNATE [Concomitant]
     Active Substance: DIFLUPREDNATE
     Dosage: UNK
     Route: 061
  19. PREDNISONE [Concomitant]
     Active Substance: PREDNISONE
     Dosage: UNK
     Route: 065
  20. SOLU-MEDROL [Concomitant]
     Active Substance: METHYLPREDNISOLONE SODIUM SUCCINATE
     Dosage: UNK
     Route: 042

REACTIONS (2)
  - Drug effective for unapproved indication [Unknown]
  - Off label use [Unknown]
